FAERS Safety Report 5173798-5 (Version None)
Quarter: 2006Q4

REPORT INFORMATION
  Report Type: 
  Country: None (occurrence: None)
  Receive Date: 20061214
  Receipt Date: 20061211
  Transmission Date: 20070319
  Serious: Yes (Other)
  Sender: FDA-Public Use
  Company Number: US-GLAXOSMITHKLINE-A0631151A

PATIENT
  Sex: Female

DRUGS (5)
  1. ADVAIR DISKUS 100/50 [Suspect]
     Indication: ASTHMA
     Route: 055
  2. ALBUTEROL [Concomitant]
  3. COMBIVENT [Concomitant]
  4. SYNTHROID [Concomitant]
  5. VITAMINS [Concomitant]

REACTIONS (6)
  - CATARACT [None]
  - CHEST PAIN [None]
  - DRUG INEFFECTIVE [None]
  - HEADACHE [None]
  - NERVOUSNESS [None]
  - VISUAL DISTURBANCE [None]
